FAERS Safety Report 7988584-8 (Version None)
Quarter: 2011Q4

REPORT INFORMATION
  Report Type: 
  Country: None (occurrence: None)
  Receive Date: 20111218
  Receipt Date: 20061124
  Transmission Date: 20120403
  Serious: Yes (Other)
  Sender: FDA-Public Use
  Company Number: PHHY2006CL009341

PATIENT
  Age: 58 Year
  Sex: Female

DRUGS (1)
  1. ZELMAC [Suspect]

REACTIONS (2)
  - FOOT FRACTURE [None]
  - ANKLE FRACTURE [None]
